FAERS Safety Report 11565971 (Version 1)
Quarter: 2015Q3

REPORT INFORMATION
  Report Type: Spontaneous
  Country: CN (occurrence: CN)
  Receive Date: 20150928
  Receipt Date: 20150928
  Transmission Date: 20151125
  Serious: Yes (Other)
  Sender: FDA-Public Use
  Company Number: CN-009507513-1509CHN012725

PATIENT

DRUGS (4)
  1. METHOTREXATE [Suspect]
     Active Substance: METHOTREXATE
     Indication: NATURAL KILLER-CELL LYMPHOBLASTIC LYMPHOMA
     Dosage: 3.0 MG/M2 OVER 24 HOURS ON DAY 1 REPEATED EVERY 3 WEEKS
     Route: 042
  2. DEXAMETHASONE. [Suspect]
     Active Substance: DEXAMETHASONE
     Indication: NATURAL KILLER-CELL LYMPHOBLASTIC LYMPHOMA
     Dosage: 40 MG,
     Route: 042
  3. PEGASPARGASE [Suspect]
     Active Substance: PEGASPARGASE
     Indication: NATURAL KILLER-CELL LYMPHOBLASTIC LYMPHOMA
     Dosage: 2500 U/M2 ON DAY4; REPEAT EVERY 3 WEEKS;UPTO 6 CYCLES
     Route: 065
  4. ETOPOSIDE. [Suspect]
     Active Substance: ETOPOSIDE
     Indication: NATURAL KILLER-CELL LYMPHOBLASTIC LYMPHOMA
     Dosage: 100 MG/M2 ON DAYS 2-4, REPEATED EVERY 3 WEEKS
     Route: 042

REACTIONS (8)
  - Blood bilirubin increased [Unknown]
  - Alanine aminotransferase increased [Unknown]
  - Anaemia [Unknown]
  - Blood fibrinogen decreased [Unknown]
  - Thrombocytopenia [Unknown]
  - Infection [Unknown]
  - Neutropenia [Unknown]
  - Aspartate aminotransferase increased [Unknown]
